FAERS Safety Report 8106367-5 (Version None)
Quarter: 2012Q1

REPORT INFORMATION
  Report Type: 
  Country: None (occurrence: None)
  Receive Date: 20120202
  Receipt Date: 20120126
  Transmission Date: 20120608
  Serious: Yes (Hospitalization)
  Sender: FDA-Public Use
  Company Number: US-CELGENEUS-163-21880-12012806

PATIENT
  Sex: Male
  Weight: 75.818 kg

DRUGS (9)
  1. REVLIMID [Suspect]
     Indication: MULTIPLE MYELOMA
     Dosage: 25 MILLIGRAM
     Route: 048
     Dates: start: 20080401
  2. VITAMIN D [Concomitant]
     Dosage: 1000 MILLIGRAM
     Route: 065
  3. REVLIMID [Suspect]
     Dosage: 10 MILLIGRAM
     Route: 048
     Dates: start: 20091201
  4. REVLIMID [Suspect]
     Dosage: 5 MILLIGRAM
     Route: 048
     Dates: start: 20100401, end: 20120101
  5. REVLIMID [Suspect]
     Dosage: 15-25MG
     Route: 048
     Dates: start: 20080701
  6. VITAMIN B COMPLEX CAP [Concomitant]
     Dosage: 1
     Route: 065
  7. DEXAMETHASONE [Concomitant]
     Dosage: 40 MILLIGRAM
     Route: 065
  8. CENTRUM [Concomitant]
     Dosage: 1
     Route: 065
  9. COUMADIN [Concomitant]
     Dosage: 3 MILLIGRAM
     Route: 065

REACTIONS (2)
  - FATIGUE [None]
  - ABASIA [None]
